FAERS Safety Report 4718344-2 (Version None)
Quarter: 2005Q3

REPORT INFORMATION
  Report Type: 
  Country: None (occurrence: None)
  Receive Date: 20050718
  Receipt Date: 20041202
  Transmission Date: 20060218
  Serious: Yes (Other)
  Sender: FDA-Public Use
  Company Number: 240917

PATIENT
  Age: 40 Year
  Sex: Female

DRUGS (2)
  1. ACTIVELLA ( ESTRADIOL HEMIHYDRATE, NORTETHISTERONE ACETATE) FILM-COATE [Suspect]
     Indication: HORMONE REPLACEMENT THERAPY
     Dosage: ORAL
     Route: 048
     Dates: start: 20011227, end: 20021201
  2. PREMPHASE 14/14 [Concomitant]

REACTIONS (1)
  - BREAST CANCER [None]
